FAERS Safety Report 22096208 (Version 1)
Quarter: 2023Q1

REPORT INFORMATION
  Report Type: Other
  Country: US (occurrence: None)
  Receive Date: 20230315
  Receipt Date: 20230315
  Transmission Date: 20230418
  Serious: Yes (Other)
  Sender: FDA-Public Use
  Company Number: US-ROCHE-3306282

PATIENT
  Sex: Male

DRUGS (7)
  1. BEVACIZUMAB [Suspect]
     Active Substance: BEVACIZUMAB
     Indication: Rhabdoid tumour of the kidney
     Route: 042
  2. ETOPOSIDE [Suspect]
     Active Substance: ETOPOSIDE
     Indication: Rhabdoid tumour of the kidney
     Dosage: FROM 1-21 DAYS
     Route: 048
  3. CYCLOPHOSPHAMIDE [Suspect]
     Active Substance: CYCLOPHOSPHAMIDE
     Indication: Rhabdoid tumour of the kidney
     Dosage: FROM DAYS 22-42
     Route: 048
  4. CYCLOPHOSPHAMIDE [Suspect]
     Active Substance: CYCLOPHOSPHAMIDE
     Dosage: ON DAYS 22-42
     Route: 065
  5. CELECOXIB [Suspect]
     Active Substance: CELECOXIB
     Indication: Rhabdoid tumour of the kidney
     Route: 048
  6. VALPROIC ACID [Suspect]
     Active Substance: VALPROIC ACID
     Indication: Rhabdoid tumour of the kidney
     Dosage: DIVIDED INTO TWO DOSES (DOSE ADJUSTED TO ACHIEVE LEVELS OF 100-150 MICROG/ML)
     Route: 065
  7. TEMOZOLOMIDE [Suspect]
     Active Substance: TEMOZOLOMIDE
     Indication: Rhabdoid tumour of the kidney
     Dosage: ON DAYS 1-21
     Route: 065

REACTIONS (1)
  - Neoplasm [Unknown]
